FAERS Safety Report 11793968 (Version 1)
Quarter: 2015Q4

REPORT INFORMATION
  Report Type: Spontaneous
  Country: US (occurrence: None)
  Receive Date: 20151201
  Receipt Date: 20151201
  Transmission Date: 20160305
  Serious: Yes (Other)
  Sender: FDA-Public Use
  Company Number: None

PATIENT
  Age: 66 Year
  Sex: Male
  Weight: 120.2 kg

DRUGS (4)
  1. CENTRUM ADULT MULTIVITAMIN [Concomitant]
  2. VIMPAT [Suspect]
     Active Substance: LACOSAMIDE
     Indication: EPILEPSY
     Route: 048
     Dates: start: 20151106, end: 20151118
  3. LISINOPRIL. [Concomitant]
     Active Substance: LISINOPRIL
  4. LAMOTRIGINE. [Concomitant]
     Active Substance: LAMOTRIGINE

REACTIONS (5)
  - Confusional state [None]
  - Judgement impaired [None]
  - Delusion [None]
  - Panic reaction [None]
  - Memory impairment [None]
